FAERS Safety Report 17258247 (Version 1)
Quarter: 2020Q1

REPORT INFORMATION
  Report Type: Spontaneous
  Country: SE (occurrence: SE)
  Receive Date: 20200110
  Receipt Date: 20200110
  Transmission Date: 20200409
  Serious: Yes (Hospitalization)
  Sender: FDA-Public Use
  Company Number: SE-MYLANLABS-2020M1002483

PATIENT
  Age: 21 Year
  Sex: Female

DRUGS (1)
  1. ERY-MAX [Suspect]
     Active Substance: ERYTHROMYCIN
     Indication: PNEUMONIA STREPTOCOCCAL
     Dosage: UNK
     Route: 065
     Dates: start: 20190821

REACTIONS (1)
  - Abdominal pain [Recovering/Resolving]

NARRATIVE: CASE EVENT DATE: 20190822
